FAERS Safety Report 17165936 (Version 3)
Quarter: 2021Q3

REPORT INFORMATION
  Report Type: Report from Study
  Country: None (occurrence: BE)
  Receive Date: 20191217
  Receipt Date: 20210802
  Transmission Date: 20211014
  Serious: No
  Sender: FDA-Public Use
  Company Number: BE-ABBVIE-19K-013-3149159-00

PATIENT
  Age: 65 Year
  Sex: Male

DRUGS (2)
  1. IMBRUVICA [Suspect]
     Active Substance: IBRUTINIB
     Route: 048
     Dates: start: 20200207
  2. IMBRUVICA [Suspect]
     Active Substance: IBRUTINIB
     Indication: CHRONIC LYMPHOCYTIC LEUKAEMIA
     Route: 048
     Dates: start: 20190220, end: 20200131

REACTIONS (14)
  - Muscle spasms [Recovered/Resolved]
  - Muscle spasms [Recovered/Resolved]
  - Vertigo [Recovered/Resolved]
  - Night sweats [Recovered/Resolved]
  - Gingival bleeding [Recovered/Resolved]
  - Muscle spasms [Recovered/Resolved]
  - Arrhythmia [Recovered/Resolved]
  - Thrombocytopenia [Recovered/Resolved]
  - Pigmentation disorder [Recovered/Resolved]
  - Petechiae [Recovered/Resolved]
  - Phlebitis [Recovered/Resolved]
  - Mouth haemorrhage [Recovered/Resolved]
  - Hypertension [Recovered/Resolved]
  - Fatigue [Recovered/Resolved]

NARRATIVE: CASE EVENT DATE: 20190301
